FAERS Safety Report 8562419-7 (Version None)
Quarter: 2012Q3

REPORT INFORMATION
  Report Type: 
  Country: None (occurrence: None)
  Receive Date: 20120802
  Receipt Date: 20120702
  Transmission Date: 20120928
  Serious: No
  Sender: FDA-Public Use
  Company Number: US-AMGEN-USASP2011025304

PATIENT
  Age: 70 Year
  Sex: Male

DRUGS (1)
  1. ENBREL [Suspect]
     Indication: PSORIASIS
     Dosage: 50 MG, QWK
     Dates: start: 20110223

REACTIONS (6)
  - OPEN WOUND [None]
  - WOUND COMPLICATION [None]
  - VENOUS INSUFFICIENCY [None]
  - CELLULITIS [None]
  - WOUND SECRETION [None]
  - SKIN ULCER [None]
